FAERS Safety Report 8997974 (Version 1)
Quarter: 2013Q1

REPORT INFORMATION
  Report Type: Spontaneous
  Country: JP (occurrence: JP)
  Receive Date: 20130104
  Receipt Date: 20130104
  Transmission Date: 20140127
  Serious: Yes (Life-Threatening, Other)
  Sender: FDA-Public Use
  Company Number: JP-ROCHE-1170925

PATIENT
  Age: 56 Year
  Sex: Male
  Weight: 70 kg

DRUGS (6)
  1. AVASTIN [Suspect]
     Indication: LUNG ADENOCARCINOMA METASTATIC
     Dosage: DOSAGE IS UNCERTAIN.
     Route: 041
     Dates: start: 20121121, end: 20121121
  2. ALIMTA [Concomitant]
     Indication: LUNG ADENOCARCINOMA METASTATIC
     Dosage: DOSAGE IS UNCERTAIN.
     Route: 041
     Dates: start: 20121121
  3. CARBOPLATIN [Concomitant]
     Indication: LUNG ADENOCARCINOMA METASTATIC
     Route: 041
     Dates: start: 20121121
  4. PANVITAN [Concomitant]
     Indication: PROPHYLAXIS
     Route: 065
     Dates: start: 20121114
  5. NASEA [Concomitant]
     Indication: PROPHYLAXIS
     Route: 065
     Dates: start: 20121121
  6. DEXART [Concomitant]
     Indication: PROPHYLAXIS
     Route: 065
     Dates: start: 20121121

REACTIONS (4)
  - Tumour haemorrhage [Recovering/Resolving]
  - Haematemesis [Recovering/Resolving]
  - Bone marrow failure [Not Recovered/Not Resolved]
  - Anaemia [Not Recovered/Not Resolved]
